FAERS Safety Report 24862812 (Version 2)
Quarter: 2025Q1

REPORT INFORMATION
  Report Type: Spontaneous
  Country: AU (occurrence: AU)
  Receive Date: 20250120
  Receipt Date: 20250218
  Transmission Date: 20250409
  Serious: Yes (Hospitalization)
  Sender: OTSUKA
  Company Number: AU-LUNDBECK-DKLU4009161

PATIENT

DRUGS (5)
  1. BREXPIPRAZOLE [Suspect]
     Active Substance: BREXPIPRAZOLE
     Indication: Product used for unknown indication
     Route: 048
     Dates: start: 20241119
  2. BREXPIPRAZOLE [Suspect]
     Active Substance: BREXPIPRAZOLE
     Route: 048
  3. BREXPIPRAZOLE [Suspect]
     Active Substance: BREXPIPRAZOLE
     Route: 048
     Dates: start: 20241210
  4. QUETIAPINE [Suspect]
     Active Substance: QUETIAPINE
     Indication: Product used for unknown indication
     Route: 065
     Dates: start: 20241218
  5. CLONIDINE [Suspect]
     Active Substance: CLONIDINE
     Indication: Product used for unknown indication
     Route: 065
     Dates: start: 20241218

REACTIONS (15)
  - Confusional state [Recovered/Resolved]
  - Pallor [Recovered/Resolved]
  - Paralysis [Unknown]
  - Incontinence [Recovered/Resolved]
  - Catatonia [Unknown]
  - Mobility decreased [Recovered/Resolved]
  - Acute kidney injury [Recovered/Resolved]
  - Pyrexia [Recovered/Resolved]
  - Urinary retention [Unknown]
  - Hyperhidrosis [Recovered/Resolved]
  - Vomiting [Unknown]
  - Vision blurred [Unknown]
  - Tremor [Recovered/Resolved]
  - Tremor [Unknown]
  - Dizziness [Unknown]
